FAERS Safety Report 6945150-0 (Version None)
Quarter: 2010Q3

REPORT INFORMATION
  Report Type: 
  Country: None (occurrence: None)
  Receive Date: 20100827
  Receipt Date: 20100818
  Transmission Date: 20110219
  Serious: Yes (Death, Hospitalization)
  Sender: FDA-Public Use
  Company Number: JP-AMGEN-QUU432666

PATIENT
  Age: 70 Year
  Sex: Female

DRUGS (1)
  1. ENBREL [Suspect]
     Indication: RHEUMATOID ARTHRITIS
     Dosage: DOSE UNSPECIFIED, DISCONTINUED AFTER FOURTH DOSE
     Route: 058

REACTIONS (2)
  - CARDIAC FAILURE [None]
  - RENAL FAILURE [None]
